FAERS Safety Report 5631217-6 (Version None)
Quarter: 2008Q1

REPORT INFORMATION
  Report Type: 
  Country: None (occurrence: None)
  Receive Date: 20080219
  Receipt Date: 20080207
  Transmission Date: 20080703
  Serious: Yes (Other)
  Sender: FDA-Public Use
  Company Number: US-PFIZER INC-2008013769

PATIENT
  Sex: Female
  Weight: 65.8 kg

DRUGS (5)
  1. CHANTIX [Suspect]
     Indication: SMOKING CESSATION THERAPY
     Route: 048
  2. ANXIOLYTICS [Interacting]
     Indication: ANXIETY
  3. TOPROL-XL [Interacting]
     Indication: CARDIAC DISORDER
  4. TRAMADOL HCL [Concomitant]
     Indication: PAIN
  5. FUROSEMIDE [Concomitant]

REACTIONS (11)
  - ABDOMINAL DISTENSION [None]
  - ABNORMAL DREAMS [None]
  - AMENORRHOEA [None]
  - ASTHENIA [None]
  - CONSTIPATION [None]
  - DRUG INTERACTION [None]
  - MEMORY IMPAIRMENT [None]
  - NAUSEA [None]
  - SOMNOLENCE [None]
  - TRANCE [None]
  - WEIGHT INCREASED [None]
